FAERS Safety Report 23181444 (Version 1)
Quarter: 2023Q4

REPORT INFORMATION
  Report Type: Other
  Country: US (occurrence: US)
  Receive Date: 20231114
  Receipt Date: 20231114
  Transmission Date: 20240109
  Serious: Yes (Hospitalization, Other)
  Sender: FDA-Public Use
  Company Number: US-INTERCEPT-PM2023001953

PATIENT
  Age: 79 Year
  Sex: Female
  Weight: 45.351 kg

DRUGS (7)
  1. OCALIVA [Suspect]
     Active Substance: OBETICHOLIC ACID
     Indication: Primary biliary cholangitis
     Dosage: 5 MILLIGRAM, QD
     Route: 048
     Dates: start: 20190806
  2. URSODIOL [Concomitant]
     Active Substance: URSODIOL
  3. CHOLESTYRAMINE [Concomitant]
     Active Substance: CHOLESTYRAMINE
  4. COLCHICINE [Concomitant]
     Active Substance: COLCHICINE
  5. ESOMEPRAZOLE MAGNESIUM [Concomitant]
     Active Substance: ESOMEPRAZOLE\ESOMEPRAZOLE MAGNESIUM\ESOMEPRAZOLE MAGNESIUM DIHYDRATE
  6. ZETIA [Concomitant]
     Active Substance: EZETIMIBE
  7. CIPRO [Concomitant]
     Active Substance: CIPROFLOXACIN HYDROCHLORIDE

REACTIONS (6)
  - Colon operation [Recovered/Resolved]
  - Gastric ulcer [Recovering/Resolving]
  - Oesophageal haemorrhage [Unknown]
  - Oesophageal variceal ligation [Recovered/Resolved]
  - Cystitis [Unknown]
  - Liver disorder [Not Recovered/Not Resolved]

NARRATIVE: CASE EVENT DATE: 20231001
